FAERS Safety Report 13822565 (Version 1)
Quarter: 2017Q3

REPORT INFORMATION
  Report Type: Spontaneous
  Country: CN (occurrence: CN)
  Receive Date: 20170801
  Receipt Date: 20170801
  Transmission Date: 20171127
  Serious: Yes (Hospitalization)
  Sender: FDA-Public Use
  Company Number: CN-FERRINGPH-2017FE03400

PATIENT

DRUGS (1)
  1. PROPESS [Suspect]
     Active Substance: DINOPROSTONE
     Indication: INDUCTION OF CERVIX RIPENING
     Dosage: 10 MG, ONCE/SINGLE
     Route: 064
     Dates: start: 20170623, end: 20170623

REACTIONS (6)
  - Brain injury [Unknown]
  - Sepsis neonatal [Unknown]
  - Tachycardia foetal [Recovered/Resolved]
  - Thyroid disorder [Unknown]
  - Neonatal respiratory distress syndrome [Unknown]
  - Neonatal pneumonia [Recovering/Resolving]

NARRATIVE: CASE EVENT DATE: 20170623
